FAERS Safety Report 4681736-4 (Version None)
Quarter: 2005Q2

REPORT INFORMATION
  Report Type: 
  Country: None (occurrence: None)
  Receive Date: 20050603
  Receipt Date: 20050309
  Transmission Date: 20051028
  Serious: Yes (Disabling, Other)
  Sender: FDA-Public Use
  Company Number: US-MERCK-0503USA02112

PATIENT
  Age: 60 Year
  Sex: Female
  Weight: 73 kg

DRUGS (6)
  1. VIOXX [Suspect]
     Indication: ARTHRITIS
     Route: 048
     Dates: start: 19991126, end: 20041001
  2. TRIAMTERENE [Concomitant]
     Route: 048
  3. CLARITIN-D [Concomitant]
     Route: 048
  4. FLONASE [Concomitant]
     Route: 055
  5. VALTREX [Concomitant]
     Route: 048
  6. PREMARIN [Concomitant]
     Indication: HORMONE REPLACEMENT THERAPY
     Route: 065
     Dates: start: 19980826, end: 20011201

REACTIONS (11)
  - ANXIETY [None]
  - ATHEROSCLEROSIS [None]
  - CARDIAC ARREST [None]
  - CARPAL TUNNEL SYNDROME [None]
  - DEPRESSION [None]
  - DIABETES MELLITUS [None]
  - EMOTIONAL DISTRESS [None]
  - LOSS OF CONSCIOUSNESS [None]
  - MYOCARDIAL INFARCTION [None]
  - NEOPLASM MALIGNANT [None]
  - PAIN [None]
